FAERS Safety Report 12191351 (Version 2)
Quarter: 2016Q2

REPORT INFORMATION
  Report Type: Report from Study
  Country: US (occurrence: US)
  Receive Date: 20160318
  Receipt Date: 20160414
  Transmission Date: 20160815
  Serious: Yes (Hospitalization)
  Sender: FDA-Public Use
  Company Number: US-ACTELION-A-NJ2016-133179

PATIENT
  Age: 58 Year
  Sex: Female

DRUGS (14)
  1. ASPIRIN. [Concomitant]
     Active Substance: ASPIRIN
  2. MYCOPHENOLATE [Concomitant]
     Active Substance: MYCOPHENOLIC ACID
  3. URSODIOL. [Concomitant]
     Active Substance: URSODIOL
  4. METOPROLOL. [Concomitant]
     Active Substance: METOPROLOL
  5. LOSARTAN. [Concomitant]
     Active Substance: LOSARTAN
  6. HEPARIN [Concomitant]
     Active Substance: HEPARIN SODIUM
     Route: 058
  7. VENTAVIS [Suspect]
     Active Substance: ILOPROST
     Indication: PULMONARY HYPERTENSION
     Dosage: 5 MCG 4-5 X DAILY
     Route: 055
     Dates: start: 20080822
  8. ADCIRCA [Concomitant]
     Active Substance: TADALAFIL
  9. PROTONIX [Concomitant]
     Active Substance: PANTOPRAZOLE SODIUM
  10. PRAVASTATIN [Concomitant]
     Active Substance: PRAVASTATIN\PRAVASTATIN SODIUM
  11. TACROLIMUS. [Concomitant]
     Active Substance: TACROLIMUS
  12. LETAIRIS [Concomitant]
     Active Substance: AMBRISENTAN
  13. MULTIVITAMIN [Concomitant]
     Active Substance: VITAMINS
  14. INSULIN [Concomitant]
     Active Substance: INSULIN NOS

REACTIONS (11)
  - Fatigue [Recovered/Resolved]
  - Nasal congestion [Recovered/Resolved]
  - Pyrexia [Recovered/Resolved]
  - Diarrhoea [Recovered/Resolved]
  - Nausea [Recovered/Resolved]
  - Vomiting [Recovered/Resolved]
  - Chills [Recovered/Resolved]
  - Oropharyngeal pain [Recovered/Resolved]
  - Asthenia [Recovered/Resolved]
  - Influenza [Recovered/Resolved]
  - Productive cough [Recovered/Resolved]

NARRATIVE: CASE EVENT DATE: 20160308
